FAERS Safety Report 8789947 (Version 2)
Quarter: 2013Q4

REPORT INFORMATION
  Report Type: Spontaneous
  Country: US (occurrence: US)
  Receive Date: 20120917
  Receipt Date: 20131101
  Transmission Date: 20140711
  Serious: No
  Sender: FDA-Public Use
  Company Number: US-009507513-1209USA001906

PATIENT
  Age: 21 Year
  Sex: Female
  Weight: 54.42 kg

DRUGS (2)
  1. IMPLANON [Suspect]
     Indication: CONTRACEPTION
     Dosage: 1 ROD UP TO 3 YEARS
     Route: 059
     Dates: start: 201203
  2. TYLENOL [Concomitant]
     Indication: HEADACHE
     Dosage: WHEN NEEDED

REACTIONS (7)
  - Pollakiuria [Unknown]
  - Unintended pregnancy [Unknown]
  - Fatigue [Unknown]
  - Nausea [Unknown]
  - Medical device complication [Unknown]
  - Implant site pain [Unknown]
  - Hypoaesthesia [Unknown]
